FAERS Safety Report 16979204 (Version 4)
Quarter: 2020Q4

REPORT INFORMATION
  Report Type: Spontaneous
  Country: US (occurrence: US)
  Receive Date: 20191031
  Receipt Date: 20201214
  Transmission Date: 20210113
  Serious: No
  Sender: FDA-Public Use
  Company Number: US-PFIZER INC-2019470971

PATIENT
  Age: 48 Year
  Sex: Female

DRUGS (2)
  1. LYRICA [Suspect]
     Active Substance: PREGABALIN
     Dosage: 150 MG, 3X/DAY (TAKE 1 (ONE) CAPSULE BY MOUTH THREE TIMES A DAY) (INCREASED DOSE)
     Route: 048
  2. LYRICA [Suspect]
     Active Substance: PREGABALIN
     Indication: FIBROMYALGIA
     Dosage: 75 MG, 3X/DAY (TAKE 1 (ONE) CAPSULE BY MOUTH THREE TIMES A DAY)
     Route: 048

REACTIONS (2)
  - Drug hypersensitivity [Unknown]
  - Weight increased [Unknown]
